FAERS Safety Report 8095272-9 (Version None)
Quarter: 2012Q1

REPORT INFORMATION
  Report Type: 
  Country: None (occurrence: None)
  Receive Date: 20120129
  Receipt Date: 20111219
  Transmission Date: 20120608
  Serious: No
  Sender: FDA-Public Use
  Company Number: US-ABBOTT-11P-163-0884740-00

PATIENT
  Age: 51 Year
  Sex: Female

DRUGS (12)
  1. OMEPRAZOLE [Concomitant]
     Indication: GASTROOESOPHAGEAL REFLUX DISEASE
  2. CYCLOBENZAPRINE [Concomitant]
     Indication: MUSCLE RELAXANT THERAPY
     Dosage: 10MG QHS
  3. DIOVAN [Concomitant]
     Indication: HYPERTENSION
  4. BUMETANIDE [Concomitant]
     Indication: DIURETIC THERAPY
  5. WARFARIN SODIUM [Concomitant]
     Indication: THROMBOSIS
     Dosage: DAILY EXCEPT THURSDAY 15MG
  6. ADVAIR DISKUS 100/50 [Concomitant]
     Indication: CHRONIC OBSTRUCTIVE PULMONARY DISEASE
     Route: 055
  7. HUMIRA [Suspect]
     Indication: PSORIASIS
     Dates: start: 20110901
  8. WARFARIN SODIUM [Concomitant]
     Dosage: 15 MG ON THURSDAY
  9. LEVOTHYROXINE SODIUM [Concomitant]
     Indication: HYPOTHYROIDISM
  10. SPIRIVA [Concomitant]
     Indication: CHRONIC OBSTRUCTIVE PULMONARY DISEASE
     Route: 055
  11. METFORMIN HCL [Concomitant]
     Indication: DIABETES MELLITUS
  12. LORAZEPAM [Concomitant]
     Indication: ANXIETY

REACTIONS (1)
  - INJECTION SITE HAEMORRHAGE [None]
